FAERS Safety Report 10061524 (Version 1)
Quarter: 2014Q2

REPORT INFORMATION
  Report Type: Spontaneous
  Country: DE (occurrence: DE)
  Receive Date: 20140407
  Receipt Date: 20140407
  Transmission Date: 20141212
  Serious: Yes (Other)
  Sender: FDA-Public Use
  Company Number: DE-JNJFOC-20140316552

PATIENT
  Sex: 0

DRUGS (2)
  1. INFLIXIMAB, RECOMBINANT [Suspect]
     Indication: INFLAMMATORY BOWEL DISEASE
     Route: 042
  2. ADALIMUMAB [Suspect]
     Indication: INFLAMMATORY BOWEL DISEASE
     Route: 065

REACTIONS (11)
  - Dermatitis psoriasiform [Unknown]
  - Pustular psoriasis [Unknown]
  - Psoriasis [Unknown]
  - Guttate psoriasis [Unknown]
  - Diffuse alopecia [Unknown]
  - Infusion related reaction [Unknown]
  - Erythema [Unknown]
  - Viral skin infection [Unknown]
  - Eczema [Unknown]
  - Dry skin [Unknown]
  - Skin bacterial infection [Unknown]
